FAERS Safety Report 9382394 (Version 2)
Quarter: 2013Q3

REPORT INFORMATION
  Report Type: Spontaneous
  Country: AU (occurrence: AU)
  Receive Date: 20130703
  Receipt Date: 20130716
  Transmission Date: 20140515
  Serious: Yes (Death, Hospitalization)
  Sender: FDA-Public Use
  Company Number: AU-BRISTOL-MYERS SQUIBB COMPANY-19066349

PATIENT
  Age: 57 Year
  Sex: 0

DRUGS (7)
  1. YERVOY [Suspect]
     Indication: METASTATIC MALIGNANT MELANOMA
     Dates: start: 20130410, end: 20130501
  2. GABAPENTIN [Concomitant]
  3. MELOXICAM [Concomitant]
  4. ENDEP [Concomitant]
  5. DIAZEPAM [Concomitant]
  6. DOCUSATE SODIUM\SENNOSIDES [Concomitant]
  7. MOVICOL [Concomitant]

REACTIONS (2)
  - Intracranial tumour haemorrhage [Fatal]
  - Malignant neoplasm progression [Fatal]
